FAERS Safety Report 9986755 (Version 2)
Quarter: 2014Q2

REPORT INFORMATION
  Report Type: Spontaneous
  Country: US (occurrence: US)
  Receive Date: 20140307
  Receipt Date: 20140410
  Transmission Date: 20141212
  Serious: No
  Sender: FDA-Public Use
  Company Number: US-B.I. PHARMACEUTICALS,INC./RIDGEFIELD-2014-BI-08355BP

PATIENT
  Age: 60 Year
  Sex: Female
  Weight: 77 kg

DRUGS (6)
  1. COMBIVENT [Suspect]
     Indication: SARCOIDOSIS
     Dosage: STRENGTH: 20 MCG / 100 MCG; DAILY DOSE: 80 MCG/ 400 MCG
     Route: 055
     Dates: start: 20130908
  2. COMBIVENT [Suspect]
     Indication: COUGH
  3. MUCINEX [Concomitant]
     Indication: COUGH
     Route: 065
  4. NASOCORT [Concomitant]
     Indication: RHINITIS ALLERGIC
     Route: 065
  5. MELATONIN [Concomitant]
     Indication: INSOMNIA
     Route: 065
  6. OFLOXACIN [Concomitant]
     Indication: OTITIS MEDIA
     Route: 065

REACTIONS (5)
  - Chest pain [Recovered/Resolved]
  - Cerumen impaction [Not Recovered/Not Resolved]
  - Dyspnoea [Not Recovered/Not Resolved]
  - Off label use [Unknown]
  - Drug ineffective [Not Recovered/Not Resolved]
